FAERS Safety Report 9925735 (Version 1)
Quarter: 2014Q1

REPORT INFORMATION
  Report Type: Spontaneous
  Country: DO (occurrence: DO)
  Receive Date: 20140226
  Receipt Date: 20140226
  Transmission Date: 20141002
  Serious: Yes (Hospitalization)
  Sender: FDA-Public Use
  Company Number: DO-HORIZON-VIM-0014-2014

PATIENT
  Sex: Male

DRUGS (1)
  1. VIMOVO [Suspect]
     Indication: ARTHRALGIA
     Dosage: 1 DOSAGE FORM
     Route: 048

REACTIONS (3)
  - Facial nerve disorder [Unknown]
  - Pallor [Unknown]
  - Dizziness [Unknown]
